FAERS Safety Report 12922856 (Version 1)
Quarter: 2016Q4

REPORT INFORMATION
  Report Type: Spontaneous
  Country: JP (occurrence: JP)
  Receive Date: 20161109
  Receipt Date: 20161109
  Transmission Date: 20170207
  Serious: Yes (Hospitalization)
  Sender: FDA-Public Use
  Company Number: JP-009507513-1610JPN011844

PATIENT
  Age: 66 Year
  Sex: Female

DRUGS (7)
  1. KIPRES [Suspect]
     Active Substance: MONTELUKAST SODIUM
     Indication: PHARYNGITIS
     Dosage: 10 MG DAILY
     Route: 048
     Dates: start: 20160906, end: 20160920
  2. AMOXICILLIN. [Suspect]
     Active Substance: AMOXICILLIN
     Indication: PHARYNGITIS
     Dosage: 750 MG, DAILY
     Dates: start: 20160906, end: 20160913
  3. AMOXICILLIN. [Suspect]
     Active Substance: AMOXICILLIN
     Indication: ACUTE SINUSITIS
  4. AZUNOL (SODIUM GUALENATE) [Concomitant]
     Dosage: UNKNOWN
     Route: 048
     Dates: start: 20160906
  5. MUCODYNE [Concomitant]
     Active Substance: CARBOCYSTEINE
     Dosage: 1500 MG PER DAY
     Route: 048
     Dates: start: 20160906, end: 20160920
  6. KIPRES [Suspect]
     Active Substance: MONTELUKAST SODIUM
     Indication: ACUTE SINUSITIS
  7. TRANSAMIN [Concomitant]
     Active Substance: TRANEXAMIC ACID
     Dosage: 750 MG, DAILY
     Route: 048
     Dates: start: 20160906, end: 20160920

REACTIONS (1)
  - Eosinophilic pneumonia [Unknown]

NARRATIVE: CASE EVENT DATE: 20160913
